FAERS Safety Report 19901353 (Version 1)
Quarter: 2021Q3

REPORT INFORMATION
  Report Type: Spontaneous
  Country: US (occurrence: US)
  Receive Date: 20210930
  Receipt Date: 20210930
  Transmission Date: 20211014
  Serious: Yes (Other)
  Sender: FDA-Public Use
  Company Number: None

PATIENT
  Age: 42 Year
  Sex: Female
  Weight: 72 kg

DRUGS (11)
  1. ADDERALL [Concomitant]
     Active Substance: AMPHETAMINE ASPARTATE\AMPHETAMINE SULFATE\DEXTROAMPHETAMINE SACCHARATE\DEXTROAMPHETAMINE SULFATE
  2. MAGNESIUM [Concomitant]
     Active Substance: MAGNESIUM
  3. XANAX [Concomitant]
     Active Substance: ALPRAZOLAM
  4. PROBIOTIC [Concomitant]
     Active Substance: PROBIOTICS NOS
  5. PEMAZYRE [Suspect]
     Active Substance: PEMIGATINIB
     Indication: CHOLANGIOCARCINOMA
     Dosage: ?          QUANTITY:1 TABLET(S);OTHER FREQUENCY:14 DAYS ON?7 OFF;?
     Route: 048
  6. PHOSPHATE [Concomitant]
     Active Substance: UNSPECIFIED INGREDIENT
  7. ADVAIR HFA [Concomitant]
     Active Substance: FLUTICASONE PROPIONATE\SALMETEROL XINAFOATE
  8. DAILY MULTI?VITAMIN [Concomitant]
     Active Substance: VITAMINS
  9. ZYRTEC [Concomitant]
     Active Substance: CETIRIZINE HYDROCHLORIDE
  10. VITAMIN D [Concomitant]
     Active Substance: VITAMIN D NOS
  11. VENTOLIN [Concomitant]
     Active Substance: ALBUTEROL SULFATE

REACTIONS (6)
  - Skin disorder [None]
  - Nephrolithiasis [None]
  - Retinal detachment [None]
  - Palmar-plantar erythrodysaesthesia syndrome [None]
  - Stomatitis [None]
  - Renal impairment [None]

NARRATIVE: CASE EVENT DATE: 20191112
